FAERS Safety Report 4690668-7 (Version None)
Quarter: 2005Q2

REPORT INFORMATION
  Report Type: 
  Country: None (occurrence: None)
  Receive Date: 20050615
  Receipt Date: 20050602
  Transmission Date: 20051028
  Serious: Yes (Hospitalization)
  Sender: FDA-Public Use
  Company Number: TAG 05 01 94

PATIENT
  Age: 84 Year
  Sex: Female
  Weight: 52 kg

DRUGS (6)
  1. TAGAMET [Suspect]
     Route: 048
  2. ATARAX [Suspect]
     Route: 048
  3. SECTRAL [Suspect]
     Route: 048
  4. PRAVACHOL [Suspect]
     Route: 048
  5. LOVENOX [Suspect]
     Route: 048
  6. PLAVIX [Suspect]
     Route: 048

REACTIONS (1)
  - DERMATITIS BULLOUS [None]
